FAERS Safety Report 7656043-8 (Version None)
Quarter: 2011Q3

REPORT INFORMATION
  Report Type: 
  Country: None (occurrence: None)
  Receive Date: 20110804
  Receipt Date: 20110728
  Transmission Date: 20111222
  Serious: Yes (Death, Life-Threatening, Other)
  Sender: FDA-Public Use
  Company Number: US-ELI_LILLY_AND_COMPANY-US201107008156

PATIENT
  Age: 68 Year
  Sex: Female

DRUGS (1)
  1. EFFIENT [Suspect]
     Indication: ACUTE MYOCARDIAL INFARCTION
     Dosage: UNK, LOADING DOSE
     Dates: start: 20110701, end: 20110701

REACTIONS (3)
  - SYNCOPE [None]
  - CARDIAC ARREST [None]
  - INTRA-ABDOMINAL HAEMORRHAGE [None]
